FAERS Safety Report 9054251 (Version 3)
Quarter: 2013Q1

REPORT INFORMATION
  Report Type: Spontaneous
  Country: US (occurrence: US)
  Receive Date: 20130208
  Receipt Date: 20130325
  Transmission Date: 20140127
  Serious: Yes (Hospitalization)
  Sender: FDA-Public Use
  Company Number: US-GLAXOSMITHKLINE-A1011273A

PATIENT
  Age: 56 Year
  Sex: Female

DRUGS (9)
  1. LOVAZA [Suspect]
     Indication: PRODUCT USED FOR UNKNOWN INDICATION
     Dosage: 1G UNKNOWN
     Route: 048
     Dates: start: 20120531
  2. ARIXTRA [Suspect]
     Indication: PRODUCT USED FOR UNKNOWN INDICATION
     Dosage: 7.5MG UNKNOWN
     Route: 065
  3. CATAPRES [Concomitant]
     Dosage: .5MG TWICE PER DAY
     Route: 048
  4. KLONOPIN [Concomitant]
     Dosage: .5MG PER DAY
     Route: 048
  5. METAMUCIL [Concomitant]
     Dosage: 1000MG TWICE PER DAY
     Route: 048
  6. MUCINEX [Concomitant]
     Dosage: 600MG TWICE PER DAY
     Route: 048
  7. NEURONTIN [Concomitant]
     Dosage: 100MG TWICE PER DAY
     Route: 048
  8. PHENOBARBITAL [Concomitant]
     Dosage: 15MG TWICE PER DAY
     Route: 048
  9. VITAMIN C + BIOFLAVONOIDS [Concomitant]
     Dosage: 1000MG PER DAY

REACTIONS (3)
  - Hospitalisation [Unknown]
  - Adverse drug reaction [Unknown]
  - Drug intolerance [Unknown]
